FAERS Safety Report 7556312-6 (Version None)
Quarter: 2011Q2

REPORT INFORMATION
  Report Type: 
  Country: None (occurrence: None)
  Receive Date: 20110620
  Receipt Date: 20110615
  Transmission Date: 20111010
  Serious: Yes (Other)
  Sender: FDA-Public Use
  Company Number: US-PFIZER INC-2011131893

PATIENT
  Sex: Female

DRUGS (1)
  1. FLAGYL [Suspect]
     Indication: INFECTION
     Dosage: UNK
     Route: 048
     Dates: start: 20110301, end: 20110501

REACTIONS (3)
  - NEUROPATHY PERIPHERAL [None]
  - BURNING SENSATION [None]
  - PARAESTHESIA [None]
